FAERS Safety Report 22393948 (Version 1)
Quarter: 2023Q2

REPORT INFORMATION
  Report Type: Spontaneous
  Country: US (occurrence: US)
  Receive Date: 20230601
  Receipt Date: 20230601
  Transmission Date: 20230721
  Serious: No
  Sender: FDA-Public Use
  Company Number: US-PFIZER INC-202300207197

PATIENT
  Age: 71 Year
  Sex: Female
  Weight: 72.76 kg

DRUGS (10)
  1. IBRANCE [Suspect]
     Active Substance: PALBOCICLIB
     Indication: Breast cancer
     Dosage: 75 MG, DAILY, EVERY 28 DAYS AND 7 DAYS OFF
     Route: 048
     Dates: start: 20230417
  2. ATROVENT [Concomitant]
     Active Substance: IPRATROPIUM BROMIDE
     Route: 045
  3. POTASSIUM [Concomitant]
     Active Substance: POTASSIUM
     Dosage: UNK MEQ
  4. CALCIUM [Concomitant]
     Active Substance: CALCIUM
  5. PROAIR BRONQUIAL [Concomitant]
  6. CLONAZEPAM [Concomitant]
     Active Substance: CLONAZEPAM
     Dosage: UNK
  7. GABAPENTIN [Concomitant]
     Active Substance: GABAPENTIN
     Dosage: 1000 MG
  8. IBUPROFEN [Concomitant]
     Active Substance: IBUPROFEN
     Dosage: UNK
  9. TAMSULOSIN [Concomitant]
     Active Substance: TAMSULOSIN
  10. RECLAST [Concomitant]
     Active Substance: ZOLEDRONIC ACID

REACTIONS (1)
  - Fatigue [Recovering/Resolving]
